FAERS Safety Report 6028702-4 (Version None)
Quarter: 2008Q4

REPORT INFORMATION
  Report Type: 
  Country: None (occurrence: None)
  Receive Date: 20081222
  Receipt Date: 20081013
  Transmission Date: 20090506
  Serious: No
  Sender: FDA-Public Use
  Company Number: ALL1-2008-02962

PATIENT
  Age: 11 Year
  Sex: Male
  Weight: 29 kg

DRUGS (1)
  1. VYVANSE [Suspect]
     Indication: ATTENTION DEFICIT/HYPERACTIVITY DISORDER
     Dosage: 70 MG, 1X/DAY:QD (WEEKDAYS ONLY), ORAL
     Route: 048
     Dates: start: 20080401

REACTIONS (3)
  - DECREASED APPETITE [None]
  - DISTURBANCE IN ATTENTION [None]
  - IMPULSIVE BEHAVIOUR [None]
